FAERS Safety Report 9159230 (Version 1)
Quarter: 2013Q1

REPORT INFORMATION
  Report Type: Spontaneous
  Country: US (occurrence: None)
  Receive Date: 20130311
  Receipt Date: 20130311
  Transmission Date: 20140127
  Serious: Yes (Death)
  Sender: FDA-Public Use
  Company Number: B0873135A

PATIENT
  Age: 11 Month
  Sex: 0

DRUGS (3)
  1. MELPHALAN [Suspect]
     Indication: BONE MARROW TRANSPLANT
  2. FLUDARABINE PHOSPHATE [Suspect]
     Indication: BONE MARROW TRANSPLANT
  3. ALEMTUZUMAB [Suspect]

REACTIONS (5)
  - Pseudomonal sepsis [None]
  - Klebsiella sepsis [None]
  - Stenotrophomonas sepsis [None]
  - Acute graft versus host disease [None]
  - Drug resistance [None]
